FAERS Safety Report 10011991 (Version 1)
Quarter: 2014Q1

REPORT INFORMATION
  Report Type: Spontaneous
  Country: US (occurrence: None)
  Receive Date: 20140313
  Receipt Date: 20140313
  Transmission Date: 20141002
  Serious: Yes (Other)
  Sender: FDA-Public Use
  Company Number: None

PATIENT
  Age: 66 Year
  Sex: Male

DRUGS (10)
  1. IMBRUVICA [Suspect]
     Route: 048
     Dates: start: 20140116
  2. ACYCLOVIR [Concomitant]
  3. OMEPRAZOLE [Concomitant]
  4. GABAPENTIN [Concomitant]
  5. PREDNISONE [Concomitant]
  6. NAPROXEN [Concomitant]
  7. CALCIUM [Concomitant]
  8. VITAM [Concomitant]
  9. DOCUSATA [Concomitant]
  10. MAGNESIUM [Concomitant]

REACTIONS (1)
  - Back pain [None]
